FAERS Safety Report 5176061-1 (Version None)
Quarter: 2006Q4

REPORT INFORMATION
  Report Type: 
  Country: None (occurrence: None)
  Receive Date: 20061215
  Receipt Date: 20060701
  Transmission Date: 20070319
  Serious: No
  Sender: FDA-Public Use
  Company Number: US-AMGEN-KDL185004

PATIENT
  Sex: Female

DRUGS (1)
  1. ENBREL [Suspect]
     Indication: PSORIASIS
     Dates: start: 20041031, end: 20051016

REACTIONS (12)
  - ANKYLOSING SPONDYLITIS [None]
  - BACK PAIN [None]
  - GROIN PAIN [None]
  - KIDNEY INFECTION [None]
  - LYMPHADENOPATHY [None]
  - MALAISE [None]
  - MENORRHAGIA [None]
  - MUSCULOSKELETAL PAIN [None]
  - PAIN IN EXTREMITY [None]
  - PSORIATIC ARTHROPATHY [None]
  - STAPHYLOCOCCAL INFECTION [None]
  - UTERINE INFECTION [None]
